FAERS Safety Report 19566144 (Version 1)
Quarter: 2021Q3

REPORT INFORMATION
  Report Type: Spontaneous
  Country: CN (occurrence: CN)
  Receive Date: 20210714
  Receipt Date: 20210714
  Transmission Date: 20211014
  Serious: Yes (Other)
  Sender: FDA-Public Use
  Company Number: CN-PFIZER INC-2021815852

PATIENT
  Age: 58 Year
  Sex: Male
  Weight: 75 kg

DRUGS (3)
  1. PIPERACILLIN/TAZOBACTAM [Suspect]
     Active Substance: PIPERACILLIN SODIUM\TAZOBACTAM SODIUM
     Indication: PNEUMONIA
     Dosage: 4.5 G, 3X/DAY (Q8H)
     Route: 041
     Dates: start: 20210614, end: 20210617
  2. PIRACETAM/SODIUM CHLORIDE [Concomitant]
     Active Substance: PIRACETAM
     Indication: INTRACRANIAL PRESSURE INCREASED
     Dosage: 20 G, 3X/DAY (Q8H)
     Route: 041
     Dates: start: 20210612, end: 20210617
  3. SODIUM CHLORIDE. [Concomitant]
     Active Substance: SODIUM CHLORIDE
     Indication: VEHICLE SOLUTION USE
     Dosage: 100 ML, 3X/DAY (Q8H)
     Route: 041
     Dates: start: 20210614, end: 20210617

REACTIONS (1)
  - Rash erythematous [Recovering/Resolving]

NARRATIVE: CASE EVENT DATE: 20210617
